FAERS Safety Report 16549133 (Version 2)
Quarter: 2019Q3

REPORT INFORMATION
  Report Type: Report from Study
  Country: MX (occurrence: MX)
  Receive Date: 20190709
  Receipt Date: 20190819
  Transmission Date: 20191004
  Serious: Yes (Hospitalization, Other)
  Sender: FDA-Public Use
  Company Number: MX-ELI_LILLY_AND_COMPANY-MX201905012633

PATIENT
  Age: 47 Year
  Sex: Male

DRUGS (2)
  1. CAPECITABINA [Suspect]
     Active Substance: CAPECITABINE
     Indication: COLORECTAL CANCER
     Dosage: UNK UNK, UNKNOWN
     Route: 048
  2. CETUXIMAB. [Suspect]
     Active Substance: CETUXIMAB
     Indication: COLORECTAL CANCER
     Dosage: 630 MG, UNKNOWN
     Route: 065
     Dates: start: 20180824

REACTIONS (4)
  - Respiratory failure [Recovering/Resolving]
  - Pharyngeal ulceration [Recovered/Resolved]
  - Skin burning sensation [Recovered/Resolved]
  - Off label use [Unknown]

NARRATIVE: CASE EVENT DATE: 201905
